FAERS Safety Report 17839211 (Version 2)
Quarter: 2020Q2

REPORT INFORMATION
  Report Type: Spontaneous
  Country: ES (occurrence: ES)
  Receive Date: 20200529
  Receipt Date: 20200604
  Transmission Date: 20200714
  Serious: Yes (Other)
  Sender: FDA-Public Use
  Company Number: ES-AUROBINDO-AUR-APL-2020-026868

PATIENT
  Age: 83 Year
  Sex: Male

DRUGS (7)
  1. PREGABALIN. [Suspect]
     Active Substance: PREGABALIN
     Indication: DEMENTIA ALZHEIMER^S TYPE
     Dosage: 25 MILLIGRAM, TWO TIMES A DAY
     Route: 065
  2. QUETIAPINE. [Suspect]
     Active Substance: QUETIAPINE
     Indication: DEMENTIA ALZHEIMER^S TYPE
     Dosage: 100 MILLIGRAM, 3 TIMES A DAY
     Route: 065
  3. MEMANTINE. [Concomitant]
     Active Substance: MEMANTINE
     Indication: DEMENTIA ALZHEIMER^S TYPE
     Dosage: 20 MILLIGRAM, ONCE A DAY
     Route: 065
  4. PREGABALIN. [Suspect]
     Active Substance: PREGABALIN
     Dosage: 100 MILLIGRAM, TWO TIMES A DAY
     Route: 065
  5. MEMANTINE. [Suspect]
     Active Substance: MEMANTINE
     Indication: DEMENTIA ALZHEIMER^S TYPE
     Dosage: 20 MILLIGRAM, ONCE A DAY
     Route: 065
  6. PREGABALIN. [Concomitant]
     Active Substance: PREGABALIN
     Indication: PRODUCT USED FOR UNKNOWN INDICATION
     Dosage: UNK
     Route: 065
  7. QUETIAPINE. [Suspect]
     Active Substance: QUETIAPINE
     Dosage: 25 MG: 0.5 DOSAGE FORM, 3 TIMES A DAY
     Route: 065

REACTIONS (4)
  - Dyskinesia [Recovering/Resolving]
  - Psychomotor hyperactivity [Recovering/Resolving]
  - Anxiety [Recovering/Resolving]
  - Akathisia [Recovering/Resolving]
